FAERS Safety Report 4946225-8 (Version None)
Quarter: 2006Q1

REPORT INFORMATION
  Report Type: 
  Country: None (occurrence: None)
  Receive Date: 20060201
  Receipt Date: 20051028
  Transmission Date: 20060701
  Serious: Yes (Hospitalization)
  Sender: FDA-Public Use
  Company Number: 2005PV003610

PATIENT
  Age: 64 Year
  Sex: Male
  Weight: 116.1208 kg

DRUGS (9)
  1. BYETTA [Suspect]
     Indication: DIABETES MELLITUS NON-INSULIN-DEPENDENT
     Dosage: 5 + 10 MCG;BID;SC
     Route: 058
     Dates: start: 20050916, end: 20051020
  2. BYETTA [Suspect]
     Indication: DIABETES MELLITUS NON-INSULIN-DEPENDENT
     Dosage: 5 + 10 MCG;BID;SC
     Route: 058
     Dates: start: 20051021
  3. ACIPHEX [Concomitant]
  4. GLUCOPHAGE [Concomitant]
  5. ACTOS [Concomitant]
  6. HYZAAR [Concomitant]
  7. LOPRESSOR [Concomitant]
  8. TRANXENE [Concomitant]
  9. WELLBUTRIN [Concomitant]

REACTIONS (6)
  - DECREASED APPETITE [None]
  - DIZZINESS [None]
  - INJECTION SITE BRUISING [None]
  - NAUSEA [None]
  - VOMITING [None]
  - WEIGHT DECREASED [None]
